FAERS Safety Report 7290406-8 (Version None)
Quarter: 2011Q1

REPORT INFORMATION
  Report Type: 
  Country: None (occurrence: None)
  Receive Date: 20110208
  Receipt Date: 20110208
  Transmission Date: 20110831
  Serious: Yes (Hospitalization)
  Sender: FDA-Public Use
  Company Number: None

PATIENT
  Age: 69 Year
  Sex: Male
  Weight: 84.5505 kg

DRUGS (2)
  1. SOLU-MEDROL [Suspect]
     Indication: CHRONIC OBSTRUCTIVE PULMONARY DISEASE
  2. SOLU-MEDROL [Suspect]
     Indication: CONDITION AGGRAVATED

REACTIONS (3)
  - BIPOLAR DISORDER [None]
  - MANIA [None]
  - CONDITION AGGRAVATED [None]
